FAERS Safety Report 5478100-7 (Version None)
Quarter: 2007Q4

REPORT INFORMATION
  Report Type: 
  Country: None (occurrence: None)
  Receive Date: 20071005
  Receipt Date: 20061010
  Transmission Date: 20080405
  Serious: No
  Sender: FDA-Public Use
  Company Number: US-BRISTOL-MYERS SQUIBB COMPANY-13536826

PATIENT
  Age: 78 Year
  Sex: Female
  Weight: 88 kg

DRUGS (2)
  1. AVAPRO [Suspect]
     Indication: HYPERTENSION
     Route: 048
  2. HYDROCHLOROTHIAZIDE [Concomitant]

REACTIONS (2)
  - EYELID DISORDER [None]
  - VISION BLURRED [None]
